FAERS Safety Report 7767112-6 (Version None)
Quarter: 2011Q3

REPORT INFORMATION
  Report Type: 
  Country: None (occurrence: None)
  Receive Date: 20110922
  Receipt Date: 20110607
  Transmission Date: 20111222
  Serious: No
  Sender: FDA-Public Use
  Company Number: US-ASTRAZENECA-2011SE34870

PATIENT
  Age: 68 Year
  Sex: Female

DRUGS (4)
  1. SEROQUEL XR [Suspect]
     Indication: BIPOLAR DISORDER
     Route: 048
     Dates: start: 20110201
  2. SEROQUEL XR [Suspect]
     Indication: SLEEP DISORDER
     Route: 048
     Dates: start: 20110201
  3. LITHIUM CARBONATE [Concomitant]
  4. METFORMIN HCL [Concomitant]
     Dosage: DOSE FREQUENCY-BID, TOTAL DAILY DOSE- 500 MG

REACTIONS (3)
  - DIABETES MELLITUS [None]
  - FATIGUE [None]
  - FEELING ABNORMAL [None]
